FAERS Safety Report 4683682-9 (Version None)
Quarter: 2005Q2

REPORT INFORMATION
  Report Type: 
  Country: None (occurrence: None)
  Receive Date: 20050602
  Receipt Date: 20050224
  Transmission Date: 20051028
  Serious: No
  Sender: FDA-Public Use
  Company Number: 200510336BWH

PATIENT
  Age: 69 Year
  Sex: Male

DRUGS (7)
  1. LEVITRA [Suspect]
     Indication: ERECTILE DYSFUNCTION
     Dosage: 10 MG, ONCE, ORAL
     Route: 048
     Dates: start: 20040501, end: 20040101
  2. VIAGRA [Concomitant]
  3. LOTREL [Concomitant]
  4. MEVACOR [Concomitant]
  5. ASPIRIN [Concomitant]
  6. MULTI-DAY MULTIPLE VITAMINS [Concomitant]
  7. OMEGA 500 [Concomitant]

REACTIONS (6)
  - ANAEMIA [None]
  - DYSLIPIDAEMIA [None]
  - GENITAL BURNING SENSATION [None]
  - GLUCOSE TOLERANCE IMPAIRED [None]
  - PENILE HAEMORRHAGE [None]
  - VASCULAR RUPTURE [None]
